FAERS Safety Report 9373043 (Version 1)
Quarter: 2013Q2

REPORT INFORMATION
  Report Type: Report from Study
  Country: US (occurrence: US)
  Receive Date: 20130627
  Receipt Date: 20130627
  Transmission Date: 20140414
  Serious: Yes (Hospitalization)
  Sender: FDA-Public Use
  Company Number: US-GLAXOSMITHKLINE-A1028838A

PATIENT
  Age: 63 Year
  Sex: Male
  Weight: 83.3 kg

DRUGS (2)
  1. OFATUMUMAB [Suspect]
     Indication: CHRONIC LYMPHOCYTIC LEUKAEMIA
     Dosage: 300MG CYCLIC
     Route: 042
     Dates: start: 20130606
  2. INVESTIGATIONAL STUDY DRUG [Suspect]
     Indication: CHRONIC LYMPHOCYTIC LEUKAEMIA
     Dosage: 150MG TWICE PER DAY
     Route: 048
     Dates: start: 20130606

REACTIONS (1)
  - Tumour lysis syndrome [Not Recovered/Not Resolved]
